FAERS Safety Report 8675698 (Version 2)
Quarter: 2020Q3

REPORT INFORMATION
  Report Type: Report from Study
  Country: US (occurrence: US)
  Receive Date: 20120720
  Receipt Date: 20120803
  Transmission Date: 20201104
  Serious: Yes (Other)
  Sender: FDA-Public Use
  Company Number: US-JNJFOC-20120708122

PATIENT
  Age: 81 Year
  Sex: Female
  Weight: 77 kg

DRUGS (18)
  1. CYANOCOBALAMIN. [Concomitant]
     Active Substance: CYANOCOBALAMIN
     Indication: VITAMIN B12 DEFICIENCY
     Dosage: 1000 MCG
     Route: 030
     Dates: start: 2008
  2. LACRI?LUBE [Concomitant]
     Indication: DRY EYE
     Dosage: QHS, ^TO^; 1 APPLICATION TO EACH EYE AT BEDTIME
     Route: 047
     Dates: start: 2010
  3. LISINOPRIL. [Concomitant]
     Active Substance: LISINOPRIL
     Indication: HYPERTENSION
     Route: 003
     Dates: start: 1992
  4. LACRI?LUBE [Concomitant]
     Indication: CONJUNCTIVITIS
     Dosage: QHS, ^TO^; 1 APPLICATION TO EACH EYE AT BEDTIME
     Route: 047
     Dates: start: 2010
  5. NORCO [Concomitant]
     Active Substance: ACETAMINOPHEN\HYDROCODONE BITARTRATE
     Indication: PAIN
     Dosage: 5 MG/325 MG
     Route: 048
     Dates: start: 2010
  6. SYMBICORT [Concomitant]
     Active Substance: BUDESONIDE\FORMOTEROL FUMARATE DIHYDRATE
     Indication: CHRONIC OBSTRUCTIVE PULMONARY DISEASE
     Route: 055
     Dates: start: 2008
  7. DEPAKOTE [Concomitant]
     Active Substance: DIVALPROEX SODIUM
     Indication: MIGRAINE
     Route: 048
     Dates: start: 201010
  8. ARTIFICIAL TEARS NOS [Concomitant]
     Indication: DRY EYE
     Dosage: ^TO^
     Route: 047
     Dates: start: 1993
  9. OMEPRAZOLE. [Concomitant]
     Active Substance: OMEPRAZOLE
     Indication: GASTROOESOPHAGEAL REFLUX DISEASE
     Route: 048
     Dates: start: 2009
  10. IMODIUM [Concomitant]
     Active Substance: LOPERAMIDE HYDROCHLORIDE
     Indication: DIARRHOEA
     Route: 048
     Dates: start: 1993
  11. ACETAMINOPHEN. [Concomitant]
     Active Substance: ACETAMINOPHEN
     Indication: INSOMNIA
     Dosage: 500 MG/25 MG
     Route: 048
     Dates: start: 2007
  12. CISAPRIDE [Suspect]
     Active Substance: CISAPRIDE
     Indication: GASTROOESOPHAGEAL REFLUX DISEASE
     Dosage: START TIME 12:30 AND STOP TIME 12:30
     Route: 048
     Dates: start: 20120709, end: 20120713
  13. FLUTICASONE. [Concomitant]
     Active Substance: FLUTICASONE
     Indication: RHINITIS ALLERGIC
     Route: 045
     Dates: start: 2010
  14. CISAPRIDE [Suspect]
     Active Substance: CISAPRIDE
     Indication: IMPAIRED GASTRIC EMPTYING
     Dosage: START TIME 12:30 AND STOP TIME 12:30
     Route: 048
     Dates: start: 20120709, end: 20120713
  15. NORVASC [Concomitant]
     Active Substance: AMLODIPINE BESYLATE
     Indication: HYPERTENSION
     Dosage: QD
     Route: 048
     Dates: start: 201204
  16. RESTASIS [Concomitant]
     Active Substance: CYCLOSPORINE
     Indication: DRY EYE
     Dosage: ^TO^; 1 DROP EACH EYE
     Route: 047
     Dates: start: 1993
  17. CREON [Concomitant]
     Active Substance: PANCRELIPASE AMYLASE\PANCRELIPASE LIPASE\PANCRELIPASE PROTEASE
     Indication: DYSPEPSIA
     Route: 048
     Dates: start: 201110
  18. NORCO [Concomitant]
     Active Substance: ACETAMINOPHEN\HYDROCODONE BITARTRATE
     Indication: HEADACHE
     Dosage: 5 MG/325 MG
     Route: 048
     Dates: start: 2010

REACTIONS (1)
  - Electrocardiogram QT prolonged [Recovered/Resolved]

NARRATIVE: CASE EVENT DATE: 20120713
